FAERS Safety Report 7462285-7 (Version None)
Quarter: 2011Q2

REPORT INFORMATION
  Report Type: 
  Country: None (occurrence: None)
  Receive Date: 20110506
  Receipt Date: 20110422
  Transmission Date: 20111010
  Serious: No
  Sender: FDA-Public Use
  Company Number: US-JNJFOC-20110311968

PATIENT
  Sex: Male
  Weight: 73.48 kg

DRUGS (4)
  1. DILAUDID [Concomitant]
     Indication: BREAKTHROUGH PAIN
     Route: 030
  2. FENTANYL [Suspect]
     Indication: PAIN
     Route: 062
  3. DILAUDID [Concomitant]
     Route: 030
  4. DURAGESIC-50 [Suspect]
     Indication: PAIN
     Route: 062

REACTIONS (3)
  - INAPPROPRIATE SCHEDULE OF DRUG ADMINISTRATION [None]
  - DRUG INEFFECTIVE [None]
  - WITHDRAWAL SYNDROME [None]
